FAERS Safety Report 8580132-7 (Version None)
Quarter: 2012Q3

REPORT INFORMATION
  Report Type: 
  Country: None (occurrence: None)
  Receive Date: 20120808
  Receipt Date: 20120803
  Transmission Date: 20120928
  Serious: Yes (Other)
  Sender: FDA-Public Use
  Company Number: US-PFIZER INC-2012173560

PATIENT
  Sex: Female

DRUGS (1)
  1. XANAX XR [Suspect]
     Dosage: UNK

REACTIONS (3)
  - DRUG INEFFECTIVE [None]
  - CROHN'S DISEASE [None]
  - MEDICATION RESIDUE [None]
